FAERS Safety Report 4801387-8 (Version None)
Quarter: 2005Q4

REPORT INFORMATION
  Report Type: 
  Country: None (occurrence: None)
  Receive Date: 20051017
  Receipt Date: 20051010
  Transmission Date: 20060501
  Serious: Yes (Hospitalization)
  Sender: FDA-Public Use
  Company Number: MY-ABBOTT-05P-101-0313459-00

PATIENT
  Sex: Female

DRUGS (2)
  1. IBERET FA [Suspect]
     Indication: IRON DEFICIENCY ANAEMIA
     Route: 048
  2. IBERET FA [Suspect]

REACTIONS (3)
  - DIZZINESS [None]
  - GASTRITIS [None]
  - PALPITATIONS [None]
